FAERS Safety Report 12669635 (Version 1)
Quarter: 2016Q3

REPORT INFORMATION
  Report Type: Report from Study
  Country: BR (occurrence: BR)
  Receive Date: 20160819
  Receipt Date: 20160819
  Transmission Date: 20161109
  Serious: Yes (Disabling)
  Sender: FDA-Public Use
  Company Number: BR-ABBVIE-16K-020-1702606-00

PATIENT
  Sex: Female

DRUGS (1)
  1. HUMIRA [Suspect]
     Active Substance: ADALIMUMAB
     Indication: CROHN^S DISEASE
     Route: 058
     Dates: start: 20140128

REACTIONS (4)
  - Gastrointestinal disorder [Unknown]
  - Deafness [Unknown]
  - Dysgraphia [Unknown]
  - Blood pressure abnormal [Unknown]
